FAERS Safety Report 4594661-4 (Version None)
Quarter: 2005Q1

REPORT INFORMATION
  Report Type: 
  Country: None (occurrence: None)
  Receive Date: 20050301
  Receipt Date: 20041201
  Transmission Date: 20050727
  Serious: Yes (Other)
  Sender: FDA-Public Use
  Company Number: US-BRISTOL-MYERS SQUIBB COMPANY-12783601

PATIENT

DRUGS (1)
  1. ERBITUX [Suspect]

REACTIONS (1)
  - HYPERSENSITIVITY [None]
